FAERS Safety Report 16235250 (Version 1)
Quarter: 2019Q2

REPORT INFORMATION
  Report Type: Spontaneous
  Country: IT (occurrence: IT)
  Receive Date: 20190424
  Receipt Date: 20190424
  Transmission Date: 20190711
  Serious: Yes (Other)
  Sender: FDA-Public Use
  Company Number: IT-MYLANLABS-2019M1037529

PATIENT
  Age: 41 Year
  Sex: Male

DRUGS (3)
  1. ZOLPIDEM [Suspect]
     Active Substance: ZOLPIDEM\ZOLPIDEM TARTRATE
     Indication: PRODUCT USED FOR UNKNOWN INDICATION
     Dosage: 150 MILLIGRAM, TOTAL
     Route: 048
  2. MUTABON F [Suspect]
     Active Substance: AMITRIPTYLINE HYDROCHLORIDE\PERPHENAZINE
     Indication: PRODUCT USED FOR UNKNOWN INDICATION
     Dosage: 375 MILLIGRAM, TOTAL
     Route: 065
  3. TRITTICO [Suspect]
     Active Substance: TRAZODONE HYDROCHLORIDE
     Indication: PRODUCT USED FOR UNKNOWN INDICATION
     Dosage: 1125 MILLIGRAM, TOTAL
     Route: 048

REACTIONS (5)
  - Confusional state [Unknown]
  - Headache [Unknown]
  - Retching [Unknown]
  - Toxicity to various agents [Unknown]
  - Sopor [Unknown]

NARRATIVE: CASE EVENT DATE: 20180714
